FAERS Safety Report 16474614 (Version 1)
Quarter: 2019Q2

REPORT INFORMATION
  Report Type: Spontaneous
  Country: PL (occurrence: PL)
  Receive Date: 20190625
  Receipt Date: 20190625
  Transmission Date: 20190711
  Serious: Yes (Hospitalization, Other)
  Sender: FDA-Public Use
  Company Number: PL-ACTELION-A-CH2019-192057

PATIENT
  Age: 2 Year
  Sex: Female

DRUGS (6)
  1. SILDENAFIL. [Concomitant]
     Active Substance: SILDENAFIL
     Indication: PULMONARY ARTERIAL HYPERTENSION
  2. DIGOXIN. [Concomitant]
     Active Substance: DIGOXIN
     Indication: PULMONARY ARTERIAL HYPERTENSION
  3. EPOPROSTENOL SODIUM. [Suspect]
     Active Substance: EPOPROSTENOL SODIUM
     Indication: PULMONARY ARTERIAL HYPERTENSION
     Route: 042
  4. BOSENTAN. [Suspect]
     Active Substance: BOSENTAN
     Indication: PULMONARY ARTERIAL HYPERTENSION
     Route: 048
  5. ACENOCOUMAROL [Concomitant]
     Active Substance: ACENOCOUMAROL
     Indication: PULMONARY ARTERIAL HYPERTENSION
  6. ILOPROST. [Suspect]
     Active Substance: ILOPROST
     Indication: PULMONARY ARTERIAL HYPERTENSION
     Route: 065

REACTIONS (13)
  - Cyanosis [Unknown]
  - Pericardial effusion [Recovered/Resolved]
  - Decreased appetite [Unknown]
  - Ventricular internal diameter abnormal [Recovered/Resolved]
  - Chest pain [Unknown]
  - Cardiac output decreased [Unknown]
  - Dyspnoea [Unknown]
  - General physical health deterioration [Unknown]
  - Systemic-pulmonary artery shunt [Unknown]
  - Irritability [Unknown]
  - Abdominal pain [Unknown]
  - Respiratory tract infection viral [Unknown]
  - Ventricular arrhythmia [Unknown]
